FAERS Safety Report 26132223 (Version 1)
Quarter: 2025Q4

REPORT INFORMATION
  Report Type: Spontaneous
  Country: US (occurrence: None)
  Receive Date: 20251207
  Receipt Date: 20251207
  Transmission Date: 20260118
  Serious: Yes (Hospitalization)
  Sender: FDA-CTU
  Company Number: None

PATIENT
  Sex: Female

DRUGS (3)
  1. DROXIDOPA [Suspect]
     Active Substance: DROXIDOPA
     Indication: Hypotension
     Dosage: 100 MG 3 TIMES A DAY ORAL
     Route: 048
     Dates: start: 20250909
  2. DROXIDOPA [Suspect]
     Active Substance: DROXIDOPA
     Indication: Cardiac failure congestive
  3. MIDODRINE [Concomitant]
     Active Substance: MIDODRINE

REACTIONS (5)
  - Vomiting [None]
  - Fatigue [None]
  - Dizziness [None]
  - Fall [None]
  - Blood pressure increased [None]
